FAERS Safety Report 18930467 (Version 1)
Quarter: 2021Q1

REPORT INFORMATION
  Report Type: Spontaneous
  Country: FI (occurrence: FI)
  Receive Date: 20210224
  Receipt Date: 20210224
  Transmission Date: 20210420
  Serious: Yes (Life-Threatening)
  Sender: FDA-Public Use
  Company Number: FI-JNJFOC-20210238776

PATIENT
  Age: 96 Year
  Sex: Female

DRUGS (6)
  1. XARELTO [Suspect]
     Active Substance: RIVAROXABAN
     Indication: ATRIAL FIBRILLATION
     Dosage: 20 MG, QD
     Route: 048
     Dates: start: 20180621, end: 20210130
  2. DULOXETINA [DULOXETINE HYDROCHLORIDE] [Concomitant]
     Active Substance: DULOXETINE HYDROCHLORIDE
     Indication: POLYNEUROPATHY
     Dosage: 30 MG, QD
     Route: 048
     Dates: start: 20180621
  3. THYROXIN [Concomitant]
     Active Substance: LEVOTHYROXINE
     Indication: HYPOTHYROIDISM
     Dosage: 0.1,MG,DAILY
     Route: 048
     Dates: start: 20180621
  4. HYDREX [HYDROCHLOROTHIAZIDE] [Concomitant]
     Indication: HYPERTENSION
     Dosage: 12.5,MG,DAILY
     Route: 048
     Dates: start: 20180621
  5. PANADOL FORTE [PARACETAMOL] [Concomitant]
     Indication: PAIN
     Dosage: 2,G,DAILY
     Route: 048
     Dates: start: 20180621
  6. CANDESARTAN. [Concomitant]
     Active Substance: CANDESARTAN
     Indication: HYPERTENSION
     Dosage: 16,MG,DAILY
     Route: 048
     Dates: start: 20180621

REACTIONS (2)
  - Cerebral haemorrhage [Not Recovered/Not Resolved]
  - Hemiparesis [Not Recovered/Not Resolved]

NARRATIVE: CASE EVENT DATE: 20210130
